FAERS Safety Report 4319978-X (Version None)
Quarter: 2004Q1

REPORT INFORMATION
  Report Type: 
  Country: None (occurrence: None)
  Receive Date: 20040315
  Receipt Date: 20040108
  Transmission Date: 20041129
  Serious: No
  Sender: FDA-Public Use
  Company Number: 2004193638US

PATIENT
  Age: 59 Year
  Sex: Female

DRUGS (2)
  1. BEXTRA [Suspect]
     Indication: BACK PAIN
     Dosage: 10 MG, QD, ORAL
     Route: 048
     Dates: start: 20040106, end: 20040108
  2. ADVIL [Concomitant]

REACTIONS (2)
  - ANAL DISCOMFORT [None]
  - HEADACHE [None]
